FAERS Safety Report 5474729-0 (Version None)
Quarter: 2007Q3

REPORT INFORMATION
  Report Type: 
  Country: None (occurrence: None)
  Receive Date: 20070927
  Receipt Date: 20070927
  Transmission Date: 20080115
  Serious: Yes (Other)
  Sender: FDA-Public Use
  Company Number: None

PATIENT
  Age: 15 Year
  Sex: Female
  Weight: 90.2658 kg

DRUGS (3)
  1. NALTREXONE 50MG MALLINCKRODT [Suspect]
     Indication: ALCOHOLISM
     Dosage: 50MG DAILY IN THE AM PO
     Route: 048
     Dates: start: 20070730, end: 20070809
  2. NALTREXONE 50MG MALLINCKRODT [Suspect]
     Indication: SELF MUTILATION
     Dosage: 50MG DAILY IN THE AM PO
     Route: 048
     Dates: start: 20070730, end: 20070809
  3. CITALOPRAM 40MG APOTEX [Suspect]
     Indication: DEPRESSION
     Dosage: 40MG DAILY IN THE AM PO
     Route: 048
     Dates: start: 20070801, end: 20070814

REACTIONS (9)
  - AGITATION [None]
  - CONDITION AGGRAVATED [None]
  - DEPRESSION [None]
  - FEELING OF DESPAIR [None]
  - FRUSTRATION [None]
  - HOMICIDAL IDEATION [None]
  - HYPOMANIA [None]
  - INTENTIONAL SELF-INJURY [None]
  - SUICIDAL IDEATION [None]
